FAERS Safety Report 7352673-1 (Version None)
Quarter: 2011Q1

REPORT INFORMATION
  Report Type: 
  Country: None (occurrence: None)
  Receive Date: 20110315
  Receipt Date: 20110307
  Transmission Date: 20110831
  Serious: Yes (Hospitalization)
  Sender: FDA-Public Use
  Company Number: US-ASTRAZENECA-2010SE55852

PATIENT
  Age: 33282 Day
  Sex: Female

DRUGS (3)
  1. CRESTOR [Suspect]
     Route: 048
     Dates: end: 20101123
  2. CRESTOR [Suspect]
     Route: 048
     Dates: start: 20101101
  3. STEROIDS [Suspect]
     Route: 065

REACTIONS (4)
  - THROMBOSIS [None]
  - BLOOD GLUCOSE INCREASED [None]
  - PNEUMONIA [None]
  - MALAISE [None]
